FAERS Safety Report 25836049 (Version 1)
Quarter: 2025Q3

REPORT INFORMATION
  Report Type: Spontaneous
  Country: US (occurrence: US)
  Receive Date: 20250923
  Receipt Date: 20250923
  Transmission Date: 20251021
  Serious: No
  Sender: BIOCON
  Company Number: US-MIMS-BCONMC-16617

PATIENT

DRUGS (1)
  1. YESINTEK [Suspect]
     Active Substance: USTEKINUMAB-KFCE
     Indication: Crohn^s disease
     Route: 058
     Dates: start: 20250717

REACTIONS (3)
  - Injury associated with device [Unknown]
  - Needle issue [Unknown]
  - Device leakage [Unknown]
